FAERS Safety Report 6746165-8 (Version None)
Quarter: 2010Q2

REPORT INFORMATION
  Report Type: 
  Country: None (occurrence: None)
  Receive Date: 20100528
  Receipt Date: 20091110
  Transmission Date: 20101027
  Serious: No
  Sender: FDA-Public Use
  Company Number: US-ASTRAZENECA-2006UW18187

PATIENT
  Sex: Female

DRUGS (7)
  1. PRILOSEC [Suspect]
     Route: 065
     Dates: start: 20000101
  2. CLARITIN [Concomitant]
  3. ADVAIR DISKUS 100/50 [Concomitant]
  4. FORADIL [Concomitant]
  5. ASMANEX TWISTHALER [Concomitant]
  6. LIPITOR [Concomitant]
  7. TRICOR [Concomitant]

REACTIONS (6)
  - ANAEMIA VITAMIN B12 DEFICIENCY [None]
  - BLOOD CREATINE PHOSPHOKINASE INCREASED [None]
  - CONCUSSION [None]
  - HEPATIC STEATOSIS [None]
  - MUSCLE SPASMS [None]
  - MYALGIA [None]
